FAERS Safety Report 6055084-4 (Version None)
Quarter: 2009Q1

REPORT INFORMATION
  Report Type: 
  Country: None (occurrence: None)
  Receive Date: 20090122
  Receipt Date: 20090107
  Transmission Date: 20090719
  Serious: Yes (Hospitalization)
  Sender: FDA-Public Use
  Company Number: PHHY2008PL32050

PATIENT
  Age: 75 Year
  Sex: Female
  Weight: 67.9942 kg

DRUGS (1)
  1. VISUDYNE [Suspect]
     Indication: MACULAR DEGENERATION
     Dosage: 5.1 ML ONCE IV
     Route: 042
     Dates: start: 20081210, end: 20081210

REACTIONS (9)
  - CHORIORETINAL DISORDER [None]
  - CORNEAL SCAR [None]
  - GLAUCOMATOUS OPTIC DISC ATROPHY [None]
  - INTRAOCULAR PRESSURE INCREASED [None]
  - OFF LABEL USE [None]
  - RETINAL HAEMORRHAGE [None]
  - RETINAL ISCHAEMIA [None]
  - RETINAL OEDEMA [None]
  - VISUAL ACUITY REDUCED [None]
